FAERS Safety Report 18863851 (Version 9)
Quarter: 2021Q3

REPORT INFORMATION
  Report Type: Report from Study
  Country: None (occurrence: JP)
  Receive Date: 20210209
  Receipt Date: 20210924
  Transmission Date: 20211014
  Serious: Yes (Hospitalization)
  Sender: FDA-Public Use
  Company Number: JP-ABBVIE-20K-087-3298884-00

PATIENT
  Age: 62 Year
  Sex: Male
  Weight: 42 kg

DRUGS (26)
  1. CLOSTRIDIUM BUTYRICUM [Concomitant]
     Active Substance: CLOSTRIDIUM BUTYRICUM SPORES STRAIN M-55
     Indication: PRODUCT USED FOR UNKNOWN INDICATION
  2. DUODOPA [Suspect]
     Active Substance: CARBIDOPA\LEVODOPA
     Dosage: MD: 11.0 ML?CD: 2.6 ML/HR?ED: 0.4 ML/UNIT
     Route: 050
     Dates: start: 20200609, end: 20200610
  3. LEVETIRACETAM. [Concomitant]
     Active Substance: LEVETIRACETAM
     Indication: PRODUCT USED FOR UNKNOWN INDICATION
  4. DUODOPA [Suspect]
     Active Substance: CARBIDOPA\LEVODOPA
     Dosage: MD: 11.8 ML?CD: 3.0 ML/HR?ED: 0.5 ML/UNIT
     Route: 050
     Dates: start: 20200219, end: 20200220
  5. SODIUM FERRIC CITRATE [Concomitant]
     Active Substance: FERRIC SODIUM CITRATE
     Route: 048
     Dates: start: 20210712
  6. ROTIGOTINE [Concomitant]
     Active Substance: ROTIGOTINE
     Indication: PRODUCT USED FOR UNKNOWN INDICATION
     Route: 062
     Dates: start: 20200204
  7. LUBIPROSTONE [Concomitant]
     Active Substance: LUBIPROSTONE
     Indication: PRODUCT USED FOR UNKNOWN INDICATION
     Route: 048
     Dates: start: 20200406
  8. LUBIPROSTONE [Concomitant]
     Active Substance: LUBIPROSTONE
     Route: 048
     Dates: start: 20210712
  9. SODIUM FERRIC CITRATE [Concomitant]
     Active Substance: FERRIC SODIUM CITRATE
     Indication: PRODUCT USED FOR UNKNOWN INDICATION
     Route: 048
     Dates: start: 20200406
  10. SODIUM PICOSULFATE [Concomitant]
     Active Substance: SODIUM PICOSULFATE
     Indication: PRODUCT USED FOR UNKNOWN INDICATION
  11. LACTULOSE. [Concomitant]
     Active Substance: LACTULOSE
     Indication: PRODUCT USED FOR UNKNOWN INDICATION
  12. RAMELTEON [Concomitant]
     Active Substance: RAMELTEON
     Indication: PRODUCT USED FOR UNKNOWN INDICATION
  13. DOMPERIDONE [Concomitant]
     Active Substance: DOMPERIDONE
     Indication: PRODUCT USED FOR UNKNOWN INDICATION
  14. BISACODYL. [Concomitant]
     Active Substance: BISACODYL
     Indication: PRODUCT USED FOR UNKNOWN INDICATION
  15. DUODOPA [Suspect]
     Active Substance: CARBIDOPA\LEVODOPA
     Dosage: MD: 11.0 ML?CD: 2.0 ML/HR?ED: 0.4 ML/UNIT
     Route: 050
     Dates: start: 20200612, end: 20201116
  16. ROTIGOTINE [Concomitant]
     Active Substance: ROTIGOTINE
     Route: 062
     Dates: start: 20200406
  17. REBAMIPIDE [Concomitant]
     Active Substance: REBAMIPIDE
     Indication: PRODUCT USED FOR UNKNOWN INDICATION
  18. MIRABEGRON [Concomitant]
     Active Substance: MIRABEGRON
     Indication: PRODUCT USED FOR UNKNOWN INDICATION
  19. MAGNESIUM OXIDE. [Concomitant]
     Active Substance: MAGNESIUM OXIDE
     Indication: PRODUCT USED FOR UNKNOWN INDICATION
  20. DUODOPA [Suspect]
     Active Substance: CARBIDOPA\LEVODOPA
     Indication: PARKINSON^S DISEASE
     Dosage: MD: 8.8 ML?CD: 3.0 ML/HR?ED: 0.5 ML/UNIT
     Route: 050
     Dates: start: 20200204, end: 20200219
  21. DUODOPA [Suspect]
     Active Substance: CARBIDOPA\LEVODOPA
     Dosage: MD: 11.0 ML?CD: 2.7 ML/HR?ED: 0.5 ML/UNIT
     Route: 050
     Dates: start: 20200220, end: 20200503
  22. DUODOPA [Suspect]
     Active Substance: CARBIDOPA\LEVODOPA
     Dosage: MD: 11.0 ML?CD: 2.4 ML/HR?ED: 0.4 ML/UNIT
     Route: 050
     Dates: start: 20200610, end: 20200611
  23. DUODOPA [Suspect]
     Active Substance: CARBIDOPA\LEVODOPA
     Dosage: MD: 11.0 ML?CD: 2.2 ML/HR?ED: 0.4 ML/UNIT
     Route: 050
     Dates: start: 20200611, end: 20200612
  24. DUODOPA [Suspect]
     Active Substance: CARBIDOPA\LEVODOPA
     Dosage: MD: 11.0 ML?CD: 2.2 ML/HR?ED: 0.4 ML/UNIT
     Route: 050
     Dates: start: 20201116
  25. ROTIGOTINE [Concomitant]
     Active Substance: ROTIGOTINE
     Route: 062
     Dates: start: 20210712
  26. DAIKENCHUTO [Concomitant]
     Active Substance: HERBALS
     Indication: PRODUCT USED FOR UNKNOWN INDICATION

REACTIONS (16)
  - Epilepsy [Recovering/Resolving]
  - Seizure [Recovering/Resolving]
  - Pneumonia aspiration [Recovering/Resolving]
  - Off label use [Not Recovered/Not Resolved]
  - Drug ineffective [Unknown]
  - Stoma site extravasation [Unknown]
  - On and off phenomenon [Unknown]
  - Intestinal dilatation [Recovered/Resolved]
  - Stoma site extravasation [Recovered/Resolved]
  - Device use issue [Unknown]
  - Therapeutic response shortened [Recovering/Resolving]
  - Device occlusion [Unknown]
  - Device dislocation [Recovered/Resolved]
  - Tremor [Unknown]
  - Amnesia [Unknown]
  - Device colour issue [Unknown]

NARRATIVE: CASE EVENT DATE: 2020
